FAERS Safety Report 19310677 (Version 1)
Quarter: 2021Q2

REPORT INFORMATION
  Report Type: Spontaneous
  Country: US (occurrence: US)
  Receive Date: 20210526
  Receipt Date: 20210526
  Transmission Date: 20210717
  Serious: No
  Sender: FDA-Public Use
  Company Number: US-AMGEN-USASP2021077205

PATIENT
  Age: 67 Year
  Sex: Female

DRUGS (3)
  1. EVENITY [Suspect]
     Active Substance: ROMOSOZUMAB-AQQG
     Indication: OSTEOPOROSIS
  2. VILOXAZINE. [Concomitant]
     Active Substance: VILOXAZINE
     Dosage: UNK
  3. EVENITY [Suspect]
     Active Substance: ROMOSOZUMAB-AQQG
     Indication: OSTEOPOROSIS POSTMENOPAUSAL
     Dosage: 210 MILLIGRAM
     Route: 065
     Dates: start: 2020

REACTIONS (6)
  - Tooth resorption [Not Recovered/Not Resolved]
  - Noninfective gingivitis [Not Recovered/Not Resolved]
  - Serum ferritin increased [Unknown]
  - Blood iron increased [Unknown]
  - Dental caries [Not Recovered/Not Resolved]
  - Wrong technique in product usage process [Unknown]
